FAERS Safety Report 19944769 (Version 1)
Quarter: 2021Q4

REPORT INFORMATION
  Report Type: Spontaneous
  Country: DE (occurrence: DE)
  Receive Date: 20211011
  Receipt Date: 20211011
  Transmission Date: 20220303
  Serious: Yes (Congenital Anomaly, Other)
  Sender: FDA-Public Use
  Company Number: DE-ANIPHARMA-2021-DE-000214

PATIENT
  Sex: Female

DRUGS (4)
  1. AMITRIPTYLINE [Suspect]
     Active Substance: AMITRIPTYLINE
     Indication: Product used for unknown indication
     Route: 015
  2. NAPROXEN [Suspect]
     Active Substance: NAPROXEN
     Indication: Product used for unknown indication
     Dosage: 500 MG DAILY
     Route: 015
  3. VITAMIN A [Suspect]
     Active Substance: VITAMIN A
     Indication: Product used for unknown indication
     Route: 015
  4. MELATONIN [Suspect]
     Active Substance: MELATONIN
     Indication: Product used for unknown indication
     Route: 015

REACTIONS (12)
  - Tracheo-oesophageal fistula [Unknown]
  - Choanal stenosis [Unknown]
  - Anomaly of external ear congenital [Unknown]
  - Single umbilical artery [Unknown]
  - Congenital choroid plexus cyst [Unknown]
  - Patent ductus arteriosus [Unknown]
  - Foetal exposure during pregnancy [Recovered/Resolved]
  - Coarctation of the aorta [Unknown]
  - Aorta hypoplasia [Unknown]
  - Ventricular septal defect [Unknown]
  - Atrial septal defect [Unknown]
  - Oesophageal atresia [Unknown]
